FAERS Safety Report 12119459 (Version 1)
Quarter: 2016Q1

REPORT INFORMATION
  Report Type: Spontaneous
  Country: CH (occurrence: CH)
  Receive Date: 20160226
  Receipt Date: 20160226
  Transmission Date: 20160526
  Serious: Yes (Other)
  Sender: FDA-Public Use
  Company Number: CH-PFIZER INC-2016116522

PATIENT
  Age: 85 Year
  Sex: Male

DRUGS (8)
  1. CREON [Concomitant]
     Active Substance: PANCRELIPASE AMYLASE\PANCRELIPASE LIPASE\PANCRELIPASE PROTEASE
     Dosage: UNK
  2. DIOVAN [Concomitant]
     Active Substance: VALSARTAN
     Dosage: UNK
  3. CORDARONE [Suspect]
     Active Substance: AMIODARONE HYDROCHLORIDE
     Indication: ATRIAL FIBRILLATION
     Dosage: 200 MG, DAILY
     Route: 048
     Dates: end: 20151022
  4. CO-AMOXI [Concomitant]
     Active Substance: AMOXICILLIN\CLAVULANATE POTASSIUM
     Dosage: UNK
  5. EXFORGE HCT [Concomitant]
     Active Substance: AMLODIPINE BESYLATE\HYDROCHLOROTHIAZIDE\VALSARTAN
     Dosage: UNK
  6. AMLODIPIN [Concomitant]
     Active Substance: AMLODIPINE BESYLATE
     Dosage: UNK
  7. KCL [Concomitant]
     Active Substance: POTASSIUM CHLORIDE
     Dosage: UNK
  8. ZYLORIC [Concomitant]
     Active Substance: ALLOPURINOL
     Dosage: UNK

REACTIONS (4)
  - Cardiac failure [Unknown]
  - Interstitial lung disease [Not Recovered/Not Resolved]
  - Hypertensive crisis [Unknown]
  - Respiratory failure [Unknown]

NARRATIVE: CASE EVENT DATE: 20151021
